FAERS Safety Report 5869746-2 (Version None)
Quarter: 2008Q3

REPORT INFORMATION
  Report Type: 
  Country: None (occurrence: None)
  Receive Date: 20080904
  Receipt Date: 20080826
  Transmission Date: 20090109
  Serious: Yes (Other)
  Sender: FDA-Public Use
  Company Number: US-ROCHE-563131

PATIENT
  Sex: Female
  Weight: 68 kg

DRUGS (7)
  1. BONIVA [Suspect]
     Indication: OSTEOPENIA
     Route: 048
     Dates: start: 20071215, end: 20080415
  2. VITAMIN [Concomitant]
     Dosage: FREQUENCY: DAILY
  3. CALCIUM/VITAMIN D [Concomitant]
  4. OMEGA [Concomitant]
     Dosage: DRUG: OMEGA 3 FISH OIL
  5. ASPIRIN [Concomitant]
     Dosage: 1 ASPIRIN
  6. OSTEO BIFLEX [Concomitant]
     Dates: start: 19980101
  7. THYROID TAB [Concomitant]
     Dosage: DRUG REPORTED: THYROID MEDICATION

REACTIONS (5)
  - BACK PAIN [None]
  - GINGIVAL DISORDER [None]
  - MUSCULOSKELETAL CHEST PAIN [None]
  - PAIN IN JAW [None]
  - RESORPTION BONE INCREASED [None]
